FAERS Safety Report 9275710 (Version 3)
Quarter: 2013Q3

REPORT INFORMATION
  Report Type: Spontaneous
  Country: US (occurrence: US)
  Receive Date: 20130507
  Receipt Date: 20130806
  Transmission Date: 20140515
  Serious: Yes (Other)
  Sender: FDA-Public Use
  Company Number: US-JNJFOC-20130502349

PATIENT
  Age: 27 Year
  Sex: Female

DRUGS (6)
  1. TOPAMAX [Suspect]
     Indication: ANXIETY
     Route: 048
     Dates: start: 20080822
  2. TOPAMAX [Suspect]
     Indication: ANXIETY
     Route: 048
     Dates: start: 200802, end: 200809
  3. CELEXA [Suspect]
     Indication: DEPRESSION
     Route: 065
  4. AMPHETAMINES [Suspect]
     Indication: PRODUCT USED FOR UNKNOWN INDICATION
     Route: 065
  5. INSULIN [Suspect]
     Indication: DIABETES MELLITUS
     Route: 065
  6. FLUOXETINE [Suspect]
     Indication: PRODUCT USED FOR UNKNOWN INDICATION
     Route: 048
     Dates: start: 20080822

REACTIONS (2)
  - Premature delivery [Recovered/Resolved]
  - Exposure during pregnancy [Recovered/Resolved]
